FAERS Safety Report 8581058-5 (Version None)
Quarter: 2012Q3

REPORT INFORMATION
  Report Type: 
  Country: None (occurrence: None)
  Receive Date: 20120809
  Receipt Date: 20120731
  Transmission Date: 20120928
  Serious: Yes (Other)
  Sender: FDA-Public Use
  Company Number: US-BAYER-2012-022242

PATIENT
  Age: 18 Year
  Sex: Female

DRUGS (7)
  1. YAZ [Suspect]
  2. YASMIN [Suspect]
  3. ONDANSETRON [Concomitant]
     Dosage: 8 MG/ TAB
     Route: 048
     Dates: start: 20091203
  4. YAZ [Suspect]
     Indication: ACNE
     Dosage: UNK
     Route: 048
     Dates: start: 20070101
  5. YAZ [Suspect]
     Indication: PREMENSTRUAL SYNDROME
  6. YASMIN [Suspect]
     Indication: PREMENSTRUAL SYNDROME
  7. YASMIN [Suspect]
     Indication: ACNE
     Dosage: UNK
     Route: 048
     Dates: start: 20070101

REACTIONS (8)
  - FEAR [None]
  - MALAISE [None]
  - GALLBLADDER INJURY [None]
  - MENTAL DISORDER [None]
  - BILIARY DYSKINESIA [None]
  - INJURY [None]
  - PAIN [None]
  - VOMITING [None]
